FAERS Safety Report 8078636-9 (Version None)
Quarter: 2012Q1

REPORT INFORMATION
  Report Type: 
  Country: None (occurrence: None)
  Receive Date: 20120124
  Receipt Date: 20120116
  Transmission Date: 20120608
  Serious: Yes (Hospitalization)
  Sender: FDA-Public Use
  Company Number: 2012MA000807

PATIENT
  Age: 64 Year
  Sex: Male

DRUGS (2)
  1. METOCLOPRAMIDE [Suspect]
     Indication: DIZZINESS
     Dosage: 10 MG; X1; IM
     Route: 030
  2. METOCLOPRAMIDE [Suspect]
     Indication: VOMITING
     Dosage: 10 MG; X1; IM
     Route: 030

REACTIONS (1)
  - BRUGADA SYNDROME [None]
